FAERS Safety Report 11594227 (Version 1)
Quarter: 2015Q4

REPORT INFORMATION
  Report Type: Spontaneous
  Country: US (occurrence: US)
  Receive Date: 20151005
  Receipt Date: 20151005
  Transmission Date: 20160304
  Serious: No
  Sender: FDA-Public Use
  Company Number: US-SA-2014SA139179

PATIENT
  Age: 79 Year
  Sex: Female

DRUGS (13)
  1. FOSAMAX [Concomitant]
     Active Substance: ALENDRONATE SODIUM
  2. METHOTREXATE [Concomitant]
     Active Substance: METHOTREXATE
  3. ASPIRIN. [Concomitant]
     Active Substance: ASPIRIN
  4. ALL OTHER THERAPEUTIC PRODUCTS [Concomitant]
     Active Substance: UNSPECIFIED INGREDIENT
     Indication: EYE DISORDER
  5. PHENYTOIN. [Concomitant]
     Active Substance: PHENYTOIN
  6. CLOPIDOGREL [Concomitant]
     Active Substance: CLOPIDOGREL BISULFATE
  7. ALL OTHER THERAPEUTIC PRODUCTS [Concomitant]
     Active Substance: UNSPECIFIED INGREDIENT
     Indication: RHEUMATOID ARTHRITIS
  8. DOXYCYCLINE. [Concomitant]
     Active Substance: DOXYCYCLINE
  9. TRIMETHOPRIM. [Concomitant]
     Active Substance: TRIMETHOPRIM
  10. OXYCODONE [Concomitant]
     Active Substance: OXYCODONE
  11. PREDNISONE. [Concomitant]
     Active Substance: PREDNISONE
  12. ARAVA [Suspect]
     Active Substance: LEFLUNOMIDE
     Route: 065
  13. SIMVASTATIN. [Concomitant]
     Active Substance: SIMVASTATIN

REACTIONS (1)
  - Osteitis [Unknown]
